FAERS Safety Report 24616159 (Version 1)
Quarter: 2024Q4

REPORT INFORMATION
  Report Type: Spontaneous
  Country: CA (occurrence: CA)
  Receive Date: 20241113
  Receipt Date: 20241113
  Transmission Date: 20250115
  Serious: Yes (Other)
  Sender: Alvotech
  Company Number: None

PATIENT
  Age: 47 Year
  Sex: Female

DRUGS (2)
  1. SIMLANDI [Suspect]
     Active Substance: ADALIMUMAB-RYVK
     Indication: Ankylosing spondylitis
     Dosage: 40 MILLIGRAM, 1 EVERY 1 WEEKS
     Route: 058
  2. AMOXICILLIN\CLAVULANATE POTASSIUM [Concomitant]
     Active Substance: AMOXICILLIN\CLAVULANATE POTASSIUM
     Indication: Product used for unknown indication
     Dosage: UNK, UNK
     Route: 065

REACTIONS (3)
  - Illness [Recovering/Resolving]
  - Influenza like illness [Recovering/Resolving]
  - Product dose omission issue [Recovering/Resolving]
